FAERS Safety Report 7788103-5 (Version None)
Quarter: 2011Q3

REPORT INFORMATION
  Report Type: 
  Country: None (occurrence: None)
  Receive Date: 20110929
  Receipt Date: 20110929
  Transmission Date: 20111222
  Serious: Yes (Other)
  Sender: FDA-Public Use
  Company Number: None

PATIENT
  Age: 50 Year
  Sex: Female
  Weight: 81 kg

DRUGS (6)
  1. LEVOTHYROXINE [Concomitant]
  2. OMEPRAZOLE [Concomitant]
  3. VITAMIN K TAB [Concomitant]
  4. NICOTINE [Concomitant]
  5. VIT D [Concomitant]
  6. MIRTAZAPINE [Suspect]
     Indication: DECREASED APPETITE
     Dosage: 15 MG PO QHS
     Route: 048
     Dates: start: 20110904, end: 20110915

REACTIONS (10)
  - ASCITES [None]
  - RENAL IMPAIRMENT [None]
  - DRUG LEVEL INCREASED [None]
  - PSYCHIATRIC SYMPTOM [None]
  - HEPATIC FUNCTION ABNORMAL [None]
  - DELIRIUM [None]
  - CONFUSIONAL STATE [None]
  - AGITATION [None]
  - CRYING [None]
  - DELUSION [None]
